FAERS Safety Report 18297041 (Version 1)
Quarter: 2020Q3

REPORT INFORMATION
  Report Type: Spontaneous
  Country: US (occurrence: US)
  Receive Date: 20200922
  Receipt Date: 20200922
  Transmission Date: 20201103
  Serious: Yes (Other)
  Sender: FDA-Public Use
  Company Number: US-AMERICAN REGENT INC-2020001924

PATIENT
  Age: 26 Year
  Sex: Female

DRUGS (6)
  1. NITROGLYCERIN INJECTION, USP (4805?10) [Suspect]
     Active Substance: NITROGLYCERIN
     Indication: PULMONARY HYPERTENSION
     Dosage: 150 MCG/MIN
     Route: 042
  2. NITROGLYCERIN INJECTION, USP (4805?10) [Suspect]
     Active Substance: NITROGLYCERIN
     Indication: CARDIAC FAILURE
  3. MILRINONE [Concomitant]
     Active Substance: MILRINONE
     Indication: PULMONARY HYPERTENSION
     Dosage: 0.5 MCG/KG/MIN
     Route: 042
  4. MILRINONE [Concomitant]
     Active Substance: MILRINONE
     Indication: CARDIAC FAILURE
  5. DOBUTAMINE [Concomitant]
     Active Substance: DOBUTAMINE HYDROCHLORIDE
     Indication: CARDIAC FAILURE
  6. DOBUTAMINE [Concomitant]
     Active Substance: DOBUTAMINE HYDROCHLORIDE
     Indication: PULMONARY HYPERTENSION
     Dosage: 2 MCG/KG/MIN
     Route: 042

REACTIONS (3)
  - Drug ineffective for unapproved indication [Recovered/Resolved]
  - Pulmonary hypertension [Recovered/Resolved]
  - Product use in unapproved indication [Unknown]
